FAERS Safety Report 5386969-X (Version None)
Quarter: 2007Q3

REPORT INFORMATION
  Report Type: 
  Country: None (occurrence: None)
  Receive Date: 20070713
  Receipt Date: 20070703
  Transmission Date: 20080115
  Serious: Yes (Other)
  Sender: FDA-Public Use
  Company Number: JP-PFIZER INC-2007055173

PATIENT
  Age: 83 Year
  Sex: Female

DRUGS (4)
  1. SOLU-MEDROL [Suspect]
     Route: 042
  2. UNASYN [Suspect]
     Route: 042
  3. DALACIN-S [Suspect]
     Route: 042
  4. ALL OTHER THERAPEUTIC PRODUCTS [Concomitant]

REACTIONS (2)
  - INJECTION SITE EXTRAVASATION [None]
  - INJECTION SITE ULCER [None]
